FAERS Safety Report 8577028-3 (Version None)
Quarter: 2012Q3

REPORT INFORMATION
  Report Type: 
  Country: None (occurrence: None)
  Receive Date: 20120807
  Receipt Date: 20120730
  Transmission Date: 20120928
  Serious: Yes (Other)
  Sender: FDA-Public Use
  Company Number: JP-VERTEX PHARMACEUTICALS INC.-AE-2012-003019

PATIENT
  Age: 66 Year
  Sex: Female

DRUGS (9)
  1. RIBAVIRIN [Concomitant]
     Indication: HEPATITIS C
     Route: 048
     Dates: start: 20120216
  2. URSODIOL [Concomitant]
     Route: 048
  3. MAGMITT [Concomitant]
     Route: 048
  4. TELAVIC (TELAPREVIR) [Suspect]
     Route: 048
     Dates: start: 20120312, end: 20120509
  5. YODEL-S [Concomitant]
     Route: 048
  6. PEGINTERFERON ALFA-2A [Concomitant]
     Indication: HEPATITIS C
     Route: 058
     Dates: start: 20120216
  7. GLAKAY [Concomitant]
     Route: 048
     Dates: end: 20120227
  8. TELAVIC (TELAPREVIR) [Suspect]
     Indication: HEPATITIS C
     Route: 048
     Dates: start: 20120216, end: 20120226
  9. TELAVIC (TELAPREVIR) [Suspect]
     Route: 048
     Dates: start: 20120301, end: 20120311

REACTIONS (1)
  - URTICARIA [None]
